FAERS Safety Report 5046274-8 (Version None)
Quarter: 2006Q2

REPORT INFORMATION
  Report Type: 
  Country: None (occurrence: None)
  Receive Date: 20060629
  Receipt Date: 20060616
  Transmission Date: 20061013
  Serious: Yes (Other)
  Sender: FDA-Public Use
  Company Number: 2006S1000150

PATIENT
  Age: 27 Year
  Sex: Female
  Weight: 54.4316 kg

DRUGS (3)
  1. SORIATANE [Suspect]
     Indication: PSORIASIS
     Dosage: 35 MG; QD; PO
     Route: 048
     Dates: start: 20040701, end: 20050601
  2. ORTH TRI-CYCLEN [Concomitant]
  3. NEORAL [Concomitant]

REACTIONS (2)
  - DRUG EXPOSURE DURING PREGNANCY [None]
  - PREGNANCY ON ORAL CONTRACEPTIVE [None]
